FAERS Safety Report 18329558 (Version 1)
Quarter: 2020Q3

REPORT INFORMATION
  Report Type: Spontaneous
  Country: US (occurrence: US)
  Receive Date: 20200930
  Receipt Date: 20200930
  Transmission Date: 20201103
  Serious: No
  Sender: FDA-Public Use
  Company Number: US-PFIZER INC-2020375076

PATIENT
  Age: 71 Year
  Sex: Female

DRUGS (1)
  1. RETACRIT [Suspect]
     Active Substance: EPOETIN ALFA-EPBX
     Indication: HAEMOGLOBIN ABNORMAL
     Dosage: UNK, WEEKLY(ONCE A WEEK)

REACTIONS (3)
  - Therapeutic product effect delayed [Unknown]
  - Off label use [Unknown]
  - Product use in unapproved indication [Unknown]
